FAERS Safety Report 16428676 (Version 5)
Quarter: 2020Q3

REPORT INFORMATION
  Report Type: Report from Study
  Country: US (occurrence: US)
  Receive Date: 20190613
  Receipt Date: 20200809
  Transmission Date: 20201102
  Serious: Yes (Hospitalization)
  Sender: FDA-Public Use
  Company Number: US-B.I. PHARMACEUTICALS,INC./RIDGEFIELD-2018-BI-058466

PATIENT
  Age: 86 Year
  Sex: Female

DRUGS (1)
  1. OFEV [Suspect]
     Active Substance: NINTEDANIB
     Indication: IDIOPATHIC PULMONARY FIBROSIS
     Route: 048
     Dates: start: 20181015

REACTIONS (12)
  - Rectal haemorrhage [Unknown]
  - Diverticulitis [Unknown]
  - Asthenia [Unknown]
  - Depression [Unknown]
  - Weight decreased [Unknown]
  - Pain [Unknown]
  - Asthenia [Unknown]
  - Fatigue [Unknown]
  - Diarrhoea [Unknown]
  - Dyspnoea exertional [Unknown]
  - Productive cough [Unknown]
  - Gastric disorder [Unknown]

NARRATIVE: CASE EVENT DATE: 2019
